FAERS Safety Report 11010127 (Version 2)
Quarter: 2015Q3

REPORT INFORMATION
  Report Type: Spontaneous
  Country: IT (occurrence: IT)
  Receive Date: 20150410
  Receipt Date: 20150814
  Transmission Date: 20151125
  Serious: Yes (Hospitalization)
  Sender: FDA-Public Use
  Company Number: IT-PFIZER INC-2015121886

PATIENT
  Age: 79 Year
  Sex: Female

DRUGS (2)
  1. TAZOCIN [Suspect]
     Active Substance: PIPERACILLIN SODIUM\TAZOBACTAM SODIUM
     Indication: DIVERTICULITIS
     Dosage: 4 G, DAILY
     Route: 042
     Dates: start: 20150226, end: 20150226
  2. PANTORC [Concomitant]
     Active Substance: PANTOPRAZOLE SODIUM
     Dosage: 1 DF, UNK
     Route: 042

REACTIONS (4)
  - Erythema of eyelid [Recovered/Resolved]
  - Dyspnoea [Recovered/Resolved]
  - Eyelid oedema [Recovered/Resolved]
  - Hyperhidrosis [Recovered/Resolved]

NARRATIVE: CASE EVENT DATE: 20150226
